FAERS Safety Report 24996691 (Version 1)
Quarter: 2025Q1

REPORT INFORMATION
  Report Type: Spontaneous
  Country: AT (occurrence: AT)
  Receive Date: 20250221
  Receipt Date: 20250221
  Transmission Date: 20250408
  Serious: Yes (Hospitalization, Other)
  Sender: DAIICHI
  Company Number: AT-DSJP-DS-2025-126560-AT

PATIENT
  Age: 73 Year
  Sex: Female

DRUGS (2)
  1. ENHERTU [Suspect]
     Active Substance: FAM-TRASTUZUMAB DERUXTECAN-NXKI
     Indication: Invasive breast carcinoma
     Route: 065
     Dates: start: 20230127, end: 20230127
  2. ENHERTU [Suspect]
     Active Substance: FAM-TRASTUZUMAB DERUXTECAN-NXKI
     Indication: Breast cancer metastatic
     Route: 065
     Dates: start: 20241122, end: 20241122

REACTIONS (2)
  - Idiopathic interstitial pneumonia [Recovering/Resolving]
  - General physical health deterioration [Recovering/Resolving]
